FAERS Safety Report 18194069 (Version 1)
Quarter: 2020Q3

REPORT INFORMATION
  Report Type: Spontaneous
  Country: DE (occurrence: DE)
  Receive Date: 20200825
  Receipt Date: 20200825
  Transmission Date: 20201103
  Serious: Yes (Other)
  Sender: FDA-Public Use
  Company Number: DE-009507513-2008DEU011405

PATIENT
  Sex: Male

DRUGS (1)
  1. ECURAL L?SUNG, 1 MG/G L?SUNG ZUR ANWENDUNG AUF DER HAUT [Suspect]
     Active Substance: MOMETASONE FUROATE
     Dosage: UNK

REACTIONS (2)
  - Vitreous injury [Not Recovered/Not Resolved]
  - Accidental exposure to product [Unknown]

NARRATIVE: CASE EVENT DATE: 20200813
